FAERS Safety Report 19399502 (Version 1)
Quarter: 2021Q2

REPORT INFORMATION
  Report Type: Spontaneous
  Country: US (occurrence: US)
  Receive Date: 20210610
  Receipt Date: 20210610
  Transmission Date: 20210717
  Serious: Yes (Hospitalization)
  Sender: FDA-Public Use
  Company Number: None

PATIENT
  Age: 52 Year
  Sex: Female
  Weight: 63 kg

DRUGS (1)
  1. PREDNISONE. [Suspect]
     Active Substance: PREDNISONE
     Indication: PRODUCT USED FOR UNKNOWN INDICATION
     Dosage: ?          QUANTITY:2 TABLET(S);?
     Dates: start: 20210604, end: 20210609

REACTIONS (6)
  - Overdose [None]
  - Crying [None]
  - Incorrect dose administered [None]
  - Nausea [None]
  - Illness [None]
  - Gastrointestinal pain [None]

NARRATIVE: CASE EVENT DATE: 20210609
